FAERS Safety Report 7403609-6 (Version None)
Quarter: 2011Q2

REPORT INFORMATION
  Report Type: 
  Country: None (occurrence: None)
  Receive Date: 20110408
  Receipt Date: 20110328
  Transmission Date: 20111010
  Serious: Yes (Other)
  Sender: FDA-Public Use
  Company Number: PHHY2011CA28529

PATIENT
  Sex: Female

DRUGS (2)
  1. SANDOSTATIN LAR [Suspect]
     Indication: VIPOMA
     Dosage: 60 MG, EVERY 2 WEEKS
     Route: 030
     Dates: start: 20070723
  2. AFINITOR [Suspect]
     Indication: VIPOMA
     Dosage: 10 MG, QD
     Route: 048
     Dates: start: 20110312, end: 20110319

REACTIONS (5)
  - EPISTAXIS [None]
  - STOMATITIS [None]
  - PRURITUS [None]
  - ASTHENIA [None]
  - ERYTHEMA [None]
